FAERS Safety Report 9750871 (Version 2)
Quarter: 2013Q4

REPORT INFORMATION
  Report Type: Spontaneous
  Country: US (occurrence: US)
  Receive Date: 20131212
  Receipt Date: 20131220
  Transmission Date: 20140711
  Serious: Yes (Death, Hospitalization)
  Sender: FDA-Public Use
  Company Number: US-B.I. PHARMACEUTICALS,INC./RIDGEFIELD-2013-BI-41600BP

PATIENT
  Age: 88 Year
  Sex: Female

DRUGS (4)
  1. SPIRIVA [Suspect]
     Indication: LUNG DISORDER
     Route: 055
  2. ADVAIR [Concomitant]
  3. CELEBREX [Concomitant]
  4. BP MEDICATIONS [Concomitant]

REACTIONS (3)
  - Death [Fatal]
  - Osteoporotic fracture [Unknown]
  - Dysphonia [Unknown]
